FAERS Safety Report 20097564 (Version 2)
Quarter: 2021Q4

REPORT INFORMATION
  Report Type: Report from Study
  Country: BR (occurrence: BR)
  Receive Date: 20211122
  Receipt Date: 20211208
  Transmission Date: 20220303
  Serious: Yes (Other)
  Sender: FDA-Public Use
  Company Number: BR-NOVARTISPH-NVSC2021BR265857

PATIENT
  Sex: Female
  Weight: 58 kg

DRUGS (2)
  1. DIOVAN [Suspect]
     Active Substance: VALSARTAN
     Indication: Product used for unknown indication
     Dosage: 1 DOSAGE FORM, QD (3 YEARS AGO)
     Route: 048
  2. SIMVASTATIN [Suspect]
     Active Substance: SIMVASTATIN
     Indication: Diabetes mellitus
     Dosage: 1 DOSAGE FORM, QD (5 YEARS AGO)
     Route: 048

REACTIONS (1)
  - Parkinson^s disease [Unknown]
